FAERS Safety Report 4668785-7 (Version None)
Quarter: 2005Q2

REPORT INFORMATION
  Report Type: 
  Country: None (occurrence: None)
  Receive Date: 20050523
  Receipt Date: 20050125
  Transmission Date: 20051028
  Serious: Yes (Hospitalization, Other)
  Sender: FDA-Public Use
  Company Number: PHNU2005DE00673

PATIENT
  Age: 85 Year
  Sex: Female

DRUGS (9)
  1. ZOMETA [Suspect]
     Indication: PLASMACYTOMA
     Dosage: 4 MG, QMO
     Dates: start: 20020807, end: 20041116
  2. PENTAERYTHRITOL TETRANITRATE [Concomitant]
     Indication: CORONARY ARTERY DISEASE
     Dosage: 80 MG, BID
     Route: 048
  3. FUROSEMIDE [Concomitant]
     Indication: CORONARY ARTERY DISEASE
     Dosage: 80 MG, BID
     Route: 048
  4. NORVASC [Concomitant]
     Indication: CORONARY ARTERY DISEASE
     Dosage: 5 MG, QD
     Route: 048
  5. STANGYL [Concomitant]
     Indication: PAIN
     Dosage: 25 MG, QD
     Route: 048
  6. VOLTAREN RESINAT ^NOVARTIS^ [Concomitant]
     Indication: PAIN
     Dosage: 75 MG, QD
     Route: 048
  7. DURAGESIC-100 [Concomitant]
     Indication: PAIN
     Dosage: 75 UG, TID
     Route: 062
  8. SOBELIN ^PHARMACIA^ [Concomitant]
     Indication: OSTEOMYELITIS ACUTE
     Route: 065
     Dates: start: 20041101
  9. BONDRONAT [Suspect]
     Indication: PLASMACYTOMA
     Dosage: 2 MG, QMO
     Dates: start: 20011210, end: 20020605

REACTIONS (7)
  - BONE DISORDER [None]
  - INFLAMMATION [None]
  - ORAL SURGERY [None]
  - OSTEOMYELITIS ACUTE [None]
  - SCINTIGRAPHY [None]
  - TOOTH ABSCESS [None]
  - WOUND TREATMENT [None]
